FAERS Safety Report 13341430 (Version 2)
Quarter: 2017Q2

REPORT INFORMATION
  Report Type: Spontaneous
  Country: US (occurrence: US)
  Receive Date: 20170316
  Receipt Date: 20170425
  Transmission Date: 20170830
  Serious: Yes (Other)
  Sender: FDA-Public Use
  Company Number: PHEH2017US007820

PATIENT
  Sex: Male

DRUGS (1)
  1. VOTRIENT [Suspect]
     Active Substance: PAZOPANIB HYDROCHLORIDE
     Indication: RENAL CANCER
     Dosage: 800 MG, QD
     Route: 048
     Dates: start: 20170216

REACTIONS (5)
  - Diarrhoea [Unknown]
  - Feeling abnormal [Unknown]
  - Malignant neoplasm progression [Unknown]
  - Ageusia [Unknown]
  - Renal cell carcinoma [Unknown]
